FAERS Safety Report 19561683 (Version 1)
Quarter: 2021Q3

REPORT INFORMATION
  Report Type: Spontaneous
  Country: US (occurrence: US)
  Receive Date: 20210715
  Receipt Date: 20210715
  Transmission Date: 20211014
  Serious: Yes (Hospitalization, Other)
  Sender: FDA-Public Use
  Company Number: US-ALVOGEN-2021-ALVOGEN-117202

PATIENT
  Age: 34 Year
  Sex: Female

DRUGS (2)
  1. METHADONE [Suspect]
     Active Substance: METHADONE HYDROCHLORIDE
     Indication: PRODUCT USED FOR UNKNOWN INDICATION
     Route: 058
  2. FENTANYL. [Suspect]
     Active Substance: FENTANYL
     Indication: PRODUCT USED FOR UNKNOWN INDICATION

REACTIONS (8)
  - Endocarditis [Recovering/Resolving]
  - Septic embolus [Recovering/Resolving]
  - Pseudomonas infection [Recovering/Resolving]
  - Enterobacter infection [Recovering/Resolving]
  - Alpha haemolytic streptococcal infection [Recovering/Resolving]
  - Deep vein thrombosis [Recovered/Resolved]
  - Drug abuse [Recovering/Resolving]
  - Tricuspid valve incompetence [Recovering/Resolving]
